FAERS Safety Report 12347717 (Version 1)
Quarter: 2016Q2

REPORT INFORMATION
  Report Type: Spontaneous
  Country: US (occurrence: US)
  Receive Date: 20160509
  Receipt Date: 20160509
  Transmission Date: 20160815
  Serious: No
  Sender: FDA-Public Use
  Company Number: US-GLAXOSMITHKLINE-CHPA2016US003518

PATIENT
  Age: 79 Year
  Sex: Male

DRUGS (4)
  1. VOLTAREN [Suspect]
     Active Substance: DICLOFENAC SODIUM
     Indication: PAIN
     Dosage: USES VERY LITTLE, WILL JUST SQUEEZE THE GEL
     Route: 061
     Dates: start: 201602
  2. VOLTAREN [Suspect]
     Active Substance: DICLOFENAC SODIUM
     Indication: SWELLING
  3. VOLTAREN [Suspect]
     Active Substance: DICLOFENAC SODIUM
     Indication: MOVEMENT DISORDER
  4. COUMADIN [Suspect]
     Active Substance: WARFARIN SODIUM
     Indication: ANTICOAGULANT THERAPY
     Dosage: UNK
     Route: 065

REACTIONS (6)
  - Wrong technique in product usage process [Unknown]
  - Drug dispensed to wrong patient [Unknown]
  - Product use issue [Unknown]
  - Product quality issue [Unknown]
  - Arthralgia [Not Recovered/Not Resolved]
  - Drug administered at inappropriate site [Unknown]

NARRATIVE: CASE EVENT DATE: 201602
